FAERS Safety Report 8236369-X (Version None)
Quarter: 2012Q1

REPORT INFORMATION
  Report Type: 
  Country: None (occurrence: None)
  Receive Date: 20120327
  Receipt Date: 20120321
  Transmission Date: 20120608
  Serious: Yes (Hospitalization)
  Sender: FDA-Public Use
  Company Number: CA-JNJFOC-20120300694

PATIENT
  Sex: Male
  Weight: 82.1 kg

DRUGS (3)
  1. STELARA [Suspect]
     Route: 058
     Dates: start: 20090901
  2. TACLONEX [Concomitant]
     Indication: PRODUCT USED FOR UNKNOWN INDICATION
  3. STELARA [Suspect]
     Indication: PSORIASIS
     Route: 058
     Dates: start: 20070627, end: 20080331

REACTIONS (3)
  - SEPSIS [None]
  - URINARY TRACT INFECTION [None]
  - PNEUMONIA PNEUMOCOCCAL [None]
